FAERS Safety Report 25883284 (Version 1)
Quarter: 2025Q4

REPORT INFORMATION
  Report Type: Spontaneous
  Country: CN (occurrence: CN)
  Receive Date: 20251006
  Receipt Date: 20251006
  Transmission Date: 20260118
  Serious: Yes (Life-Threatening, Hospitalization, Other)
  Sender: INVENTIA HEALTHCARE PRIVATE LIMITED
  Company Number: CN-Inventia-000845

PATIENT
  Age: 58 Year
  Sex: Female

DRUGS (3)
  1. METFORMIN HYDROCHLORIDE [Interacting]
     Active Substance: METFORMIN HYDROCHLORIDE
     Dosage: APPROXIMATELY 30 TABLETS/15 G
  2. RESERPINE [Interacting]
     Active Substance: RESERPINE
     Dosage: APPROXIMATELY 100 TABLETS/25 MG
  3. ENALAPRIL MALEATE [Interacting]
     Active Substance: ENALAPRIL MALEATE
     Dosage: APPROXIMATELY 16 TABLETS/80 MG

REACTIONS (22)
  - Shock [Recovered/Resolved]
  - Metabolic acidosis [Recovered/Resolved]
  - Hypoglycaemia [Recovered/Resolved]
  - Coma [Recovered/Resolved]
  - Multiple organ dysfunction syndrome [Recovered/Resolved]
  - Hypothermia [Recovered/Resolved]
  - Intentional overdose [Unknown]
  - Toxicity to various agents [Unknown]
  - Drug interaction [Unknown]
  - Blood lactic acid increased [Recovered/Resolved]
  - Disseminated intravascular coagulation [Recovered/Resolved]
  - Respiratory failure [Recovered/Resolved]
  - Pulmonary oedema [Recovered/Resolved]
  - Ileus paralytic [Recovered/Resolved]
  - Gastrointestinal haemorrhage [Recovered/Resolved]
  - Pulmonary haemorrhage [Recovered/Resolved]
  - Myocardial injury [Recovered/Resolved]
  - Capillary leak syndrome [Recovered/Resolved]
  - Abdominal compartment syndrome [Recovered/Resolved]
  - Toxic encephalopathy [Recovered/Resolved]
  - Hypoxic-ischaemic encephalopathy [Recovered/Resolved]
  - Acute kidney injury [Recovered/Resolved]
